FAERS Safety Report 19122950 (Version 1)
Quarter: 2021Q2

REPORT INFORMATION
  Report Type: Spontaneous
  Country: JP (occurrence: JP)
  Receive Date: 20210412
  Receipt Date: 20210412
  Transmission Date: 20210717
  Serious: Yes (Other)
  Sender: FDA-Public Use
  Company Number: JP-PFIZER INC-2021352266

PATIENT
  Age: 46 Year
  Sex: Male

DRUGS (6)
  1. AXITINIB [Suspect]
     Active Substance: AXITINIB
     Indication: METASTATIC RENAL CELL CARCINOMA
     Dosage: 10 MG, DAILY
     Dates: start: 201407
  2. AXITINIB [Suspect]
     Active Substance: AXITINIB
     Dosage: 8 MG, DAILY(4 DAYS?ON, 3 DAYS?OFF)
     Dates: start: 201704
  3. AXITINIB [Suspect]
     Active Substance: AXITINIB
     Dosage: 10 MG, DAILY(5 DAYS?ON, 2 DAYS?OFF)
     Dates: start: 201410
  4. ZOLEDRONIC ACID [Concomitant]
     Active Substance: ZOLEDRONIC ACID
     Indication: METASTATIC RENAL CELL CARCINOMA
     Dosage: 4 MG, MONTHLY
     Dates: start: 201406
  5. AXITINIB [Suspect]
     Active Substance: AXITINIB
     Dosage: 8 MG, DAILY(3 DAYS?ON, 3 DAYS?OFF)
     Dates: start: 201804, end: 201910
  6. AXITINIB [Suspect]
     Active Substance: AXITINIB
     Dosage: 8 MG, DAILY(5 DAYS?ON, 2 DAYS?OFF)
     Dates: start: 201412

REACTIONS (8)
  - Hypertension [Unknown]
  - Decreased appetite [Unknown]
  - Diarrhoea [Unknown]
  - Dyspnoea [Unknown]
  - Renal impairment [Unknown]
  - Proteinuria [Unknown]
  - Dysphonia [Unknown]
  - Myalgia [Unknown]

NARRATIVE: CASE EVENT DATE: 2014
